FAERS Safety Report 21925027 (Version 3)
Quarter: 2023Q1

REPORT INFORMATION
  Report Type: Spontaneous
  Country: US (occurrence: US)
  Receive Date: 20230130
  Receipt Date: 20230301
  Transmission Date: 20230418
  Serious: No
  Sender: FDA-Public Use
  Company Number: US-MYLANLABS-2023M1004542

PATIENT
  Sex: Male
  Weight: 23.59 kg

DRUGS (1)
  1. METHYLPHENIDATE [Suspect]
     Active Substance: METHYLPHENIDATE
     Indication: Attention deficit hyperactivity disorder
     Dosage: 15 MILLIGRAM, QD (ONCE A DAY) (STRENGTH: 1.6 MILLIGRAM PER HOUR)
     Route: 062

REACTIONS (3)
  - Product substitution issue [Unknown]
  - Product adhesion issue [Unknown]
  - Application site irritation [Not Recovered/Not Resolved]
